FAERS Safety Report 18274097 (Version 1)
Quarter: 2020Q3

REPORT INFORMATION
  Report Type: Spontaneous
  Country: US (occurrence: US)
  Receive Date: 20200916
  Receipt Date: 20200916
  Transmission Date: 20201103
  Serious: Yes (Hospitalization, Other)
  Sender: FDA-Public Use
  Company Number: US-BAYER-2020-189916

PATIENT
  Sex: Female

DRUGS (1)
  1. SKYLA [Suspect]
     Active Substance: LEVONORGESTREL
     Dosage: 14 ?G PER DAY, CONTINUOUSLY
     Route: 015

REACTIONS (6)
  - Tubo-ovarian abscess [None]
  - Dysuria [None]
  - Pelvic pain [None]
  - Ovarian mass [None]
  - Pain [None]
  - Proctalgia [None]
